FAERS Safety Report 16421990 (Version 1)
Quarter: 2019Q2

REPORT INFORMATION
  Report Type: Spontaneous
  Country: US (occurrence: US)
  Receive Date: 20190612
  Receipt Date: 20190612
  Transmission Date: 20190711
  Serious: No
  Sender: FDA-Public Use
  Company Number: US-PERRIGO-18US014906

PATIENT
  Age: 75 Year
  Sex: Female
  Weight: 86.17 kg

DRUGS (3)
  1. MINOXIDIL. [Suspect]
     Active Substance: MINOXIDIL
     Indication: ALOPECIA
     Dosage: 1/2 CAPFUL, QD
     Route: 061
     Dates: start: 201808, end: 20181129
  2. MINOXIDIL. [Suspect]
     Active Substance: MINOXIDIL
     Dosage: 1/2 CAPFUL, QD
     Route: 061
     Dates: start: 201808, end: 20181129
  3. OTHER OPHTHALMOLOGICALS [Concomitant]
     Indication: GLAUCOMA
     Dosage: UNK
     Route: 065
     Dates: start: 1978

REACTIONS (4)
  - Application site pustules [Recovered/Resolved]
  - Blood pressure decreased [Recovered/Resolved]
  - Dry eye [Recovered/Resolved]
  - Dizziness [Recovered/Resolved]

NARRATIVE: CASE EVENT DATE: 201811
